FAERS Safety Report 10420465 (Version 1)
Quarter: 2014Q2

REPORT INFORMATION
  Report Type: Spontaneous
  Country: US (occurrence: None)
  Receive Date: 20140618
  Receipt Date: 20140618
  Transmission Date: 20141212
  Serious: Yes (Hospitalization, Other)
  Sender: FDA-Public Use
  Company Number: 094348

PATIENT
  Sex: Male

DRUGS (3)
  1. LACOSAMIDE [Suspect]
     Indication: GENERALISED TONIC-CLONIC SEIZURE
  2. KEPPRA [Suspect]
  3. LAMICTAL ( NOT SPECIFIED) [Suspect]

REACTIONS (3)
  - Generalised tonic-clonic seizure [None]
  - Rash [None]
  - Dizziness [None]
